FAERS Safety Report 15791052 (Version 2)
Quarter: 2019Q1

REPORT INFORMATION
  Report Type: Report from Study
  Country: IL (occurrence: IL)
  Receive Date: 20190104
  Receipt Date: 20190118
  Transmission Date: 20190417
  Serious: Yes (Other)
  Sender: FDA-Public Use
  Company Number: PHHY2018IL177887

PATIENT
  Age: 12 Year
  Sex: Female
  Weight: 54 kg

DRUGS (8)
  1. DABRAFENIB [Suspect]
     Active Substance: DABRAFENIB
     Indication: METASTATIC MALIGNANT MELANOMA
     Dosage: 275 MG, UNK
     Route: 048
     Dates: start: 20181127, end: 20181203
  2. DABRAFENIB [Suspect]
     Active Substance: DABRAFENIB
     Dosage: 125 MG, QD
     Route: 048
     Dates: start: 20190101, end: 20190101
  3. TRAMETINIB [Suspect]
     Active Substance: TRAMETINIB
     Indication: METASTATIC MALIGNANT MELANOMA
     Dosage: 1.5 MG, UNK
     Route: 048
     Dates: start: 20181127, end: 20181203
  4. TRAMETINIB [Suspect]
     Active Substance: TRAMETINIB
     Dosage: 1.5 MG, QD
     Route: 048
     Dates: start: 20190101
  5. TRAMETINIB [Suspect]
     Active Substance: TRAMETINIB
     Dosage: 1.5 MG, QD
     Route: 048
     Dates: start: 20181226
  6. DABRAFENIB [Suspect]
     Active Substance: DABRAFENIB
     Dosage: 275 MG, UNK
     Route: 048
     Dates: start: 20181211
  7. DABRAFENIB [Suspect]
     Active Substance: DABRAFENIB
     Dosage: 125 MG, QD
     Route: 048
     Dates: start: 20181226
  8. TRAMETINIB [Suspect]
     Active Substance: TRAMETINIB
     Dosage: 1.5 MG, UNK
     Route: 048
     Dates: start: 20181211

REACTIONS (14)
  - Pyrexia [Recovered/Resolved]
  - Haemoglobin decreased [Unknown]
  - Nervousness [Unknown]
  - Pyrexia [Recovered/Resolved]
  - Blood phosphorus decreased [Unknown]
  - Uveitis [Recovering/Resolving]
  - Hypertension [Not Recovered/Not Resolved]
  - Blood sodium decreased [Unknown]
  - Aspartate aminotransferase increased [Unknown]
  - Gamma-glutamyltransferase increased [Unknown]
  - Asthenia [Unknown]
  - Alanine aminotransferase increased [Unknown]
  - Blood potassium increased [Unknown]
  - Weight decreased [Not Recovered/Not Resolved]

NARRATIVE: CASE EVENT DATE: 20181212
